FAERS Safety Report 20453247 (Version 1)
Quarter: 2022Q1

REPORT INFORMATION
  Report Type: Spontaneous
  Country: FR (occurrence: FR)
  Receive Date: 20220210
  Receipt Date: 20220210
  Transmission Date: 20220424
  Serious: Yes (Death, Life-Threatening, Other)
  Sender: FDA-Public Use
  Company Number: FR-AMGEN-FRASP2022019992

PATIENT

DRUGS (6)
  1. TRASTUZUMAB [Suspect]
     Active Substance: TRASTUZUMAB
     Indication: Non-small cell lung cancer
     Dosage: 8 MILLIGRAMS/KILOGRAM Q3WK, ON DAY 2 OF CYCLE 1
     Route: 042
  2. TRASTUZUMAB [Suspect]
     Active Substance: TRASTUZUMAB
     Dosage: 6  MILLIGRAM/KILLIGRAMS Q3WK, ON DAY 1 OF SUBSEQUENT CYCLES
     Route: 042
  3. PERTUZUMAB [Suspect]
     Active Substance: PERTUZUMAB
     Indication: Non-small cell lung cancer
     Dosage: LOADING DOSE OF 840 MILLIGRAM, Q3WK ON DAY 1 OF CYCLE 1
     Route: 042
  4. PERTUZUMAB [Suspect]
     Active Substance: PERTUZUMAB
     Dosage: 420 MILLIGRAMS Q3WK, ON DAY I OF SUBSEQUENT CYCLES
     Route: 042
  5. DOCETAXEL [Suspect]
     Active Substance: DOCETAXEL
     Indication: Non-small cell lung cancer
     Dosage: 75 MILLIGRAMS PER SQUARE METER OF BODY SURFACE AREA Q3WK, ON DAY 2 OF CYCLE 1
     Route: 042
  6. DOCETAXEL [Suspect]
     Active Substance: DOCETAXEL
     Dosage: 75 MILLIGRAM PER SQAURE METER, Q3WK
     Route: 042

REACTIONS (24)
  - Death [Fatal]
  - Alanine aminotransferase increased [Unknown]
  - Adverse event [Unknown]
  - Peripheral sensory neuropathy [Unknown]
  - Dry skin [Unknown]
  - Diarrhoea [Unknown]
  - Stomatitis [Unknown]
  - Fatigue [Unknown]
  - Pruritus [Unknown]
  - Paraesthesia [Unknown]
  - Anaemia [Unknown]
  - Neutrophil count decreased [Unknown]
  - Neutropenia [Unknown]
  - Aspartate aminotransferase increased [Unknown]
  - Toxicity to various agents [Unknown]
  - Alopecia [Unknown]
  - Conjunctivitis [Unknown]
  - Nausea [Unknown]
  - Vomiting [Unknown]
  - Constipation [Unknown]
  - Dysgeusia [Unknown]
  - Dyspnoea [Unknown]
  - Epistaxis [Unknown]
  - Weight decreased [Unknown]
